FAERS Safety Report 18404093 (Version 2)
Quarter: 2020Q4

REPORT INFORMATION
  Report Type: Report from Study
  Country: PT (occurrence: PT)
  Receive Date: 20201020
  Receipt Date: 20201119
  Transmission Date: 20210114
  Serious: Yes (Other)
  Sender: FDA-Public Use
  Company Number: PT-SAMSUNG BIOEPIS-SB-2020-32156

PATIENT
  Age: 50 Year
  Sex: Male

DRUGS (4)
  1. IMRALDI [Suspect]
     Active Substance: ADALIMUMAB
     Indication: PSORIASIS
     Dosage: 40 MG/0.8 ML SC WEEK ZERO (TWO INJECTIONS) OF 40 MG
     Route: 058
     Dates: start: 202001
  2. IMRALDI [Suspect]
     Active Substance: ADALIMUMAB
     Dosage: WEEK THREE (ONE INJECTIONS)
     Route: 058
     Dates: end: 202003
  3. IMRALDI [Suspect]
     Active Substance: ADALIMUMAB
     Dosage: RESUMED ON INJECTIONS ONE PEN EVERY TWO WEEKS
     Route: 058
     Dates: start: 202006
  4. IMRALDI [Suspect]
     Active Substance: ADALIMUMAB
     Dosage: WEEK ONE (ONE INJECTIONS)
     Route: 058

REACTIONS (1)
  - Hepatotoxicity [Recovered/Resolved]

NARRATIVE: CASE EVENT DATE: 202003
